FAERS Safety Report 7451982-5 (Version None)
Quarter: 2011Q2

REPORT INFORMATION
  Report Type: 
  Country: None (occurrence: None)
  Receive Date: 20110502
  Receipt Date: 20110425
  Transmission Date: 20111010
  Serious: Yes (Other)
  Sender: FDA-Public Use
  Company Number: US-PFIZER INC-2011078340

PATIENT
  Sex: Male
  Weight: 158.73 kg

DRUGS (9)
  1. ACTOPLUS MET [Concomitant]
     Indication: DIABETES MELLITUS
     Dosage: 15/850 MG TWO TIMES
     Route: 048
  2. ASPIRIN [Concomitant]
     Indication: ANTICOAGULANT THERAPY
     Dosage: 325 MG, 1X/DAY
     Route: 048
  3. LIPITOR [Concomitant]
     Indication: HYPERTENSION
     Dosage: 40 MG, 1X/DAY
     Route: 048
  4. METOPROLOL [Concomitant]
     Indication: BLOOD CHOLESTEROL INCREASED
  5. WELLBUTRIN [Suspect]
     Indication: SMOKING CESSATION THERAPY
     Dosage: UNK
     Route: 048
     Dates: start: 20080101
  6. QUINAPRIL HYDROCHLORIDE [Concomitant]
     Dosage: 10 MG, 1X/DAY
     Route: 048
  7. WELLBUTRIN [Suspect]
     Dosage: UNK
     Route: 048
     Dates: start: 20090301, end: 20090701
  8. METOPROLOL [Concomitant]
     Indication: MYOCARDIAL INFARCTION
     Dosage: 50 MG, 2X/DAY
     Route: 048
  9. CHANTIX [Suspect]
     Indication: SMOKING CESSATION THERAPY
     Dosage: 0.5 DAILY
     Route: 048
     Dates: start: 20090301, end: 20090701

REACTIONS (1)
  - ROTATOR CUFF SYNDROME [None]
